FAERS Safety Report 9694647 (Version 3)
Quarter: 2014Q1

REPORT INFORMATION
  Report Type: Report from Study
  Country: JP (occurrence: JP)
  Receive Date: 20131119
  Receipt Date: 20140101
  Transmission Date: 20141002
  Serious: Yes (Death)
  Sender: FDA-Public Use
  Company Number: JP-ROCHE-1305727

PATIENT
  Age: 85 Year
  Sex: Male
  Weight: 45 kg

DRUGS (2)
  1. METHOXY POLYETHYLENE GLYCOL-EPOETIN BETA [Suspect]
     Indication: NEPHROGENIC ANAEMIA
     Route: 042
     Dates: start: 20120815, end: 20130515
  2. RAMITALATE-L [Concomitant]
     Route: 048
     Dates: end: 20130515

REACTIONS (2)
  - Pneumonia [Fatal]
  - Hypertension [Unknown]
